FAERS Safety Report 7797709-9 (Version None)
Quarter: 2011Q4

REPORT INFORMATION
  Report Type: 
  Country: None (occurrence: None)
  Receive Date: 20111005
  Receipt Date: 20110808
  Transmission Date: 20120403
  Serious: Yes (Other)
  Sender: FDA-Public Use
  Company Number: FR-VERTEX PHARMACEUTICALS INC.-AE-2011-000883

PATIENT
  Weight: 82 kg

DRUGS (7)
  1. RIBAVIRIN [Concomitant]
     Indication: HEPATITIS C
  2. ALPRAZOLAM [Concomitant]
     Indication: ANXIETY
  3. VX-950 [Suspect]
     Indication: HEPATITIS C
     Route: 048
     Dates: start: 20110506
  4. MEPROBAMATE [Concomitant]
     Indication: SLEEP DISORDER
  5. PEGINTERFERON ALFA-2A [Concomitant]
     Indication: HEPATITIS C
     Route: 058
  6. PEGINTERFERON ALFA-2A [Concomitant]
  7. LITHIUM CARBONATE [Concomitant]
     Indication: THYMUS DISORDER

REACTIONS (2)
  - NEUTROPENIA [None]
  - HAEMOGLOBIN DECREASED [None]
